FAERS Safety Report 9223085 (Version 1)
Quarter: 2013Q1

REPORT INFORMATION
  Report Type: Spontaneous
  Country: US (occurrence: None)
  Receive Date: 20120914
  Receipt Date: 20120914
  Transmission Date: 20140127
  Serious: Yes (Hospitalization, Other)
  Sender: FDA-Public Use
  Company Number: JPI-P-017658

PATIENT
  Age: 53 Year
  Sex: Female
  Weight: 117.03 kg

DRUGS (8)
  1. XYREM (500 MILLIGRAM/MILLITERS, SOLUTION) (SODIUM OXYBATE) [Suspect]
     Indication: NARCOLEPSY
     Route: 048
     Dates: start: 20080922
  2. AMLODIPINE BESYLATE [Concomitant]
  3. UNSPECIFIED MEDICATION FOR HYPERTENSION [Concomitant]
  4. TRAMADO HYDROCHLORIDE [Concomitant]
  5. CYCLOBENZAPRINE HYDROCHLORIDE [Concomitant]
  6. METHYLPHENIDATE [Concomitant]
  7. FLUOXETINE HYDROCHLORIDE [Concomitant]
  8. VITAMINS [Concomitant]

REACTIONS (4)
  - Ankle fracture [None]
  - Post procedural discomfort [None]
  - Poor peripheral circulation [None]
  - Fall [None]
